FAERS Safety Report 24912364 (Version 4)
Quarter: 2025Q2

REPORT INFORMATION
  Report Type: Spontaneous
  Country: US (occurrence: US)
  Receive Date: 20250131
  Receipt Date: 20250415
  Transmission Date: 20250717
  Serious: Yes (Hospitalization, Other)
  Sender: ORGANON
  Company Number: US-ORGANON-O2501USA002315

PATIENT
  Age: 75 Year
  Sex: Female
  Weight: 54.9 kg

DRUGS (19)
  1. FOSAMAX [Suspect]
     Active Substance: ALENDRONATE SODIUM
     Indication: Osteoporosis
     Dates: start: 2023, end: 2024
  2. ENBREL [Suspect]
     Active Substance: ETANERCEPT
     Indication: Rheumatoid arthritis
     Dosage: 50 MILLIGRAM,QWK
     Route: 058
     Dates: start: 2010, end: 202406
  3. ENBREL [Suspect]
     Active Substance: ETANERCEPT
     Dosage: UNK, QW
     Route: 065
  4. METHOTREXATE [Suspect]
     Active Substance: METHOTREXATE
     Indication: Osteoarthritis
     Dosage: 10 MILLIGRAM, QWK (2.5 MG TAKE 4 TABLETS)
     Route: 048
  5. ADVIL [Concomitant]
     Active Substance: IBUPROFEN
     Route: 048
  6. CALCIUM [Concomitant]
     Active Substance: CALCIUM
  7. ACYCLOVIR [Concomitant]
     Active Substance: ACYCLOVIR
     Route: 048
  8. MELATONIN [Concomitant]
     Active Substance: MELATONIN
  9. FLUTICASONE PROPIONATE [Concomitant]
     Active Substance: FLUTICASONE PROPIONATE
  10. GUAR GUM [Concomitant]
     Active Substance: GUAR GUM
  11. PEPCID [Concomitant]
     Active Substance: FAMOTIDINE
  12. COVID-19 VACCINE [Concomitant]
  13. FOLIC ACID [Concomitant]
     Active Substance: FOLIC ACID
     Route: 048
  14. INFLUENZA VIRUS VACCINE [Concomitant]
     Active Substance: INFLUENZA VIRUS VACCINE
  15. IBUPROFEN [Concomitant]
     Active Substance: IBUPROFEN
     Route: 048
  16. CELECOXIB [Concomitant]
     Active Substance: CELECOXIB
  17. ROSUVASTATIN CALCIUM [Concomitant]
     Active Substance: ROSUVASTATIN CALCIUM
     Route: 048
  18. BIFIDOBACTERIUM ANIMALIS LACTIS [Concomitant]
     Active Substance: BIFIDOBACTERIUM ANIMALIS LACTIS
  19. MULTI VITAMIN [ASCORBIC ACID;COLECALCIFEROL;NICOTINAMIDE;PANTHENOL;PYR [Concomitant]

REACTIONS (22)
  - Hip fracture [Unknown]
  - Gastrointestinal disorder [Unknown]
  - Gastrooesophageal reflux disease [Unknown]
  - Fall [Unknown]
  - Headache [Unknown]
  - Blood glucose abnormal [Unknown]
  - Back pain [Unknown]
  - Uterine leiomyoma [Unknown]
  - Vertigo [Unknown]
  - Joint swelling [Unknown]
  - Arthralgia [Unknown]
  - Musculoskeletal stiffness [Unknown]
  - Neck pain [Unknown]
  - Therapy interrupted [Unknown]
  - Pain in extremity [Unknown]
  - Fatigue [Unknown]
  - Poor quality sleep [Unknown]
  - Restlessness [Unknown]
  - Nervousness [Unknown]
  - Unevaluable event [Unknown]
  - Abdominal pain [Unknown]
  - Dysstasia [Unknown]

NARRATIVE: CASE EVENT DATE: 20220512
